FAERS Safety Report 7319261-4 (Version None)
Quarter: 2011Q1

REPORT INFORMATION
  Report Type: 
  Country: None (occurrence: None)
  Receive Date: 20110228
  Receipt Date: 20100705
  Transmission Date: 20110831
  Serious: No
  Sender: FDA-Public Use
  Company Number: A0809974A

PATIENT
  Sex: Female

DRUGS (1)
  1. LAMICTAL [Suspect]
     Dosage: 600MGD PER DAY
     Route: 048
     Dates: start: 20070801

REACTIONS (4)
  - COUGH [None]
  - BRONCHITIS [None]
  - VOMITING [None]
  - THROAT IRRITATION [None]
